FAERS Safety Report 13922341 (Version 1)
Quarter: 2017Q3

REPORT INFORMATION
  Report Type: Spontaneous
  Country: US (occurrence: US)
  Receive Date: 20170830
  Receipt Date: 20170830
  Transmission Date: 20171127
  Serious: No
  Sender: FDA-Public Use
  Company Number: US-TEVA-800641ACC

PATIENT
  Sex: Female

DRUGS (1)
  1. PARAGARD T 380A [Suspect]
     Active Substance: COPPER
     Indication: CONTRACEPTION
     Dosage: SIX MONTHS AGO

REACTIONS (3)
  - Exposure during breast feeding [Unknown]
  - Menstruation delayed [Not Recovered/Not Resolved]
  - Vaginal haemorrhage [Recovered/Resolved]
